FAERS Safety Report 26128677 (Version 1)
Quarter: 2025Q4

REPORT INFORMATION
  Report Type: Report from Study
  Country: US (occurrence: US)
  Receive Date: 20251208
  Receipt Date: 20251208
  Transmission Date: 20260117
  Serious: Yes (Other)
  Sender: ALEXION PHARMACEUTICALS
  Company Number: US-AstraZeneca-CH-01005779A

PATIENT
  Sex: Female

DRUGS (1)
  1. ACALABRUTINIB [Suspect]
     Active Substance: ACALABRUTINIB
     Indication: Chronic lymphocytic leukaemia
     Dosage: 100 MILLIGRAM, BID
     Dates: start: 202301

REACTIONS (6)
  - Glaucoma [Unknown]
  - Blindness [Unknown]
  - Product dose omission issue [Unknown]
  - Neuralgia [Unknown]
  - Corneal disorder [Unknown]
  - Visual impairment [Unknown]
